FAERS Safety Report 19843790 (Version 18)
Quarter: 2025Q4

REPORT INFORMATION
  Report Type: Report from Study
  Country: CO (occurrence: CO)
  Receive Date: 20210916
  Receipt Date: 20251106
  Transmission Date: 20260118
  Serious: Yes (Hospitalization)
  Sender: TAKEDA
  Company Number: CO-TAKEDA-2021TUS056469

PATIENT
  Age: 67 Year
  Sex: Female
  Weight: 52 kg

DRUGS (2)
  1. VEDOLIZUMAB [Suspect]
     Active Substance: VEDOLIZUMAB
     Indication: Colitis ulcerative
     Dosage: 300 MILLIGRAM
  2. VEDOLIZUMAB [Suspect]
     Active Substance: VEDOLIZUMAB
     Dosage: 300 MILLIGRAM, Q4WEEKS

REACTIONS (24)
  - Gastrointestinal bacterial infection [Unknown]
  - Diarrhoea [Recovering/Resolving]
  - Malaise [Not Recovered/Not Resolved]
  - Asthenia [Recovering/Resolving]
  - Abdominal distension [Recovering/Resolving]
  - Weight decreased [Unknown]
  - Product availability issue [Unknown]
  - Product prescribing error [Unknown]
  - Abdominal pain [Unknown]
  - Body height decreased [Unknown]
  - Oropharyngeal plaque [Not Recovered/Not Resolved]
  - Dysphonia [Recovered/Resolved]
  - Drug effect less than expected [Unknown]
  - Weight increased [Unknown]
  - Body height increased [Unknown]
  - Discouragement [Unknown]
  - Decreased appetite [Unknown]
  - Nasal congestion [Not Recovered/Not Resolved]
  - Muscular weakness [Recovering/Resolving]
  - Headache [Not Recovered/Not Resolved]
  - Cough [Not Recovered/Not Resolved]
  - Arthralgia [Unknown]
  - Pyrexia [Recovered/Resolved]
  - Influenza [Not Recovered/Not Resolved]

NARRATIVE: CASE EVENT DATE: 20210904
